FAERS Safety Report 7117332-9 (Version None)
Quarter: 2010Q4

REPORT INFORMATION
  Report Type: 
  Country: None (occurrence: None)
  Receive Date: 20101122
  Receipt Date: 20101115
  Transmission Date: 20110411
  Serious: Yes (Death, Hospitalization)
  Sender: FDA-Public Use
  Company Number: VE-PFIZER INC-2010140411

PATIENT
  Age: 76 Year
  Sex: Male

DRUGS (4)
  1. LIPITOR [Suspect]
     Indication: HYPERCHOLESTEROLAEMIA
     Dosage: 80 MG, 1X/DAY
     Route: 048
     Dates: start: 20090301, end: 20090929
  2. LIPITOR [Suspect]
     Indication: CEREBROVASCULAR ACCIDENT
  3. TRANGOREX [Concomitant]
     Indication: HEART ALTERNATION
     Dosage: UNK
     Route: 048
     Dates: start: 20070101
  4. VASTAREL [Concomitant]
     Indication: CARDIAC DISORDER
     Dosage: UNK
     Route: 048
     Dates: start: 20060101

REACTIONS (2)
  - CARDIOVASCULAR DISORDER [None]
  - INFARCTION [None]
